FAERS Safety Report 9935041 (Version 3)
Quarter: 2014Q2

REPORT INFORMATION
  Report Type: Spontaneous
  Country: IT (occurrence: IT)
  Receive Date: 20140228
  Receipt Date: 20140424
  Transmission Date: 20141212
  Serious: Yes (Hospitalization)
  Sender: FDA-Public Use
  Company Number: IT-PFIZER INC-2014056388

PATIENT
  Age: 62 Year
  Sex: Female

DRUGS (4)
  1. XANAX [Suspect]
     Indication: DEPRESSION
     Dosage: 5 MG, AS NEEDED
     Route: 048
  2. XANAX [Suspect]
     Dosage: 20 DF, TOTAL
     Route: 048
     Dates: start: 20131212, end: 20131212
  3. EFEXOR ER [Suspect]
     Indication: DEPRESSION
     Dosage: 150 MG, TWICE A DAY
     Route: 048
  4. EFEXOR ER [Suspect]
     Dosage: 30 DF, TOTAL
     Route: 048
     Dates: start: 20131212, end: 20131212

REACTIONS (5)
  - Overdose [Unknown]
  - Intentional self-injury [Unknown]
  - Altered state of consciousness [Unknown]
  - Drug abuse [Unknown]
  - Sopor [Unknown]
